FAERS Safety Report 4536518-0 (Version None)
Quarter: 2004Q4

REPORT INFORMATION
  Report Type: 
  Country: None (occurrence: None)
  Receive Date: 20041223
  Receipt Date: 20041213
  Transmission Date: 20050328
  Serious: Yes (Hospitalization)
  Sender: FDA-Public Use
  Company Number: BE-JNJFOC-20041008393

PATIENT
  Sex: Male
  Weight: 80 kg

DRUGS (6)
  1. INFLIXIMAB [Suspect]
     Route: 042
  2. INFLIXIMAB [Suspect]
     Route: 042
  3. INFLIXIMAB [Suspect]
     Indication: MYELODYSPLASTIC SYNDROME
     Route: 042
  4. TRAMADOL HCL [Concomitant]
     Route: 065
  5. CELECOXIB [Concomitant]
     Route: 065
  6. DICLOFENAC [Concomitant]
     Route: 065

REACTIONS (3)
  - ABSCESS [None]
  - OSTEOMYELITIS [None]
  - SEPTIC SHOCK [None]
